FAERS Safety Report 4416384-4 (Version None)
Quarter: 2004Q3

REPORT INFORMATION
  Report Type: 
  Country: None (occurrence: None)
  Receive Date: 20040805
  Receipt Date: 20040802
  Transmission Date: 20050211
  Serious: Yes (Other)
  Sender: FDA-Public Use
  Company Number: 2004014467

PATIENT
  Age: 24 Year
  Sex: Female
  Weight: 90 kg

DRUGS (4)
  1. PAROXETINE HCL [Suspect]
     Dosage: 90TAB SINGLE DOSE
     Route: 048
     Dates: start: 20040802, end: 20040802
  2. TRAMADOL HCL [Suspect]
     Dosage: 10TAB SINGLE DOSE
     Route: 048
     Dates: start: 20040802, end: 20040802
  3. CHLORALHYDRAT [Suspect]
     Dosage: 26TAB SINGLE DOSE
     Route: 048
     Dates: start: 20040802, end: 20040802
  4. SEROQUEL [Suspect]
     Dosage: 10TAB SINGLE DOSE
     Route: 048
     Dates: start: 20040802, end: 20040802

REACTIONS (4)
  - DYSKINESIA [None]
  - INTENTIONAL OVERDOSE [None]
  - SUICIDE ATTEMPT [None]
  - VOMITING [None]
